FAERS Safety Report 7804969-4 (Version None)
Quarter: 2011Q4

REPORT INFORMATION
  Report Type: 
  Country: None (occurrence: None)
  Receive Date: 20111010
  Receipt Date: 20111002
  Transmission Date: 20120403
  Serious: Yes (Hospitalization, Other)
  Sender: FDA-Public Use
  Company Number: AT-ABBOTT-11P-009-0860373-00

PATIENT
  Age: 67 Year
  Sex: Female
  Weight: 56 kg

DRUGS (16)
  1. ZEMPLAR [Suspect]
     Indication: RENAL FAILURE CHRONIC
     Dates: start: 20100915
  2. RENVELA [Concomitant]
     Indication: HYPERPARATHYROIDISM SECONDARY
     Dates: start: 20100707
  3. XYZAL [Concomitant]
     Indication: PRODUCT USED FOR UNKNOWN INDICATION
     Route: 048
     Dates: start: 20100511
  4. ASPIRIN [Concomitant]
     Indication: PRODUCT USED FOR UNKNOWN INDICATION
     Route: 048
     Dates: start: 20100511
  5. PANTOPRAZOLE SODIUM [Concomitant]
     Indication: PRODUCT USED FOR UNKNOWN INDICATION
     Route: 048
     Dates: start: 20100511
  6. NEORECORMON [Concomitant]
     Indication: PRODUCT USED FOR UNKNOWN INDICATION
     Route: 042
     Dates: start: 20100707
  7. RENVELA [Concomitant]
  8. BISOPROLOL FUMARATE [Concomitant]
     Indication: PRODUCT USED FOR UNKNOWN INDICATION
     Route: 048
     Dates: start: 20100511
  9. RAPAMUNE [Concomitant]
     Indication: PRODUCT USED FOR UNKNOWN INDICATION
     Route: 048
     Dates: start: 20100615
  10. RENVELA [Concomitant]
     Route: 048
  11. ETALPHA [Concomitant]
     Indication: HYPERPARATHYROIDISM SECONDARY
     Route: 048
     Dates: start: 20100511
  12. PROGRAF [Concomitant]
     Indication: PRODUCT USED FOR UNKNOWN INDICATION
     Route: 048
     Dates: start: 20100804
  13. LEVOTHYROXINE SODIUM [Concomitant]
     Indication: PRODUCT USED FOR UNKNOWN INDICATION
     Route: 048
  14. LOVENOX [Concomitant]
     Indication: PRODUCT USED FOR UNKNOWN INDICATION
     Dosage: MONDAY, WEDNESDAY, FRIDAY
     Route: 042
     Dates: start: 20100709
  15. ETALPHA [Concomitant]
     Route: 048
  16. NORVASC [Concomitant]
     Indication: PRODUCT USED FOR UNKNOWN INDICATION
     Route: 048
     Dates: start: 20100511

REACTIONS (6)
  - PROCALCITONIN INCREASED [None]
  - PANCREATIC ABSCESS [None]
  - RENAL AND PANCREAS TRANSPLANT REJECTION [None]
  - C-REACTIVE PROTEIN INCREASED [None]
  - INFECTIOUS PERITONITIS [None]
  - WHITE BLOOD CELL COUNT INCREASED [None]
